FAERS Safety Report 13814950 (Version 6)
Quarter: 2019Q1

REPORT INFORMATION
  Report Type: Report from Study
  Country: FR (occurrence: FR)
  Receive Date: 20170731
  Receipt Date: 20190318
  Transmission Date: 20190417
  Serious: Yes (Other)
  Sender: FDA-Public Use
  Company Number: FR-ROCHE-1890771

PATIENT

DRUGS (5)
  1. PREDNISONE. [Concomitant]
     Active Substance: PREDNISONE
     Indication: B-CELL LYMPHOMA
     Dosage: ON DAYS 1-5 OF EACH 21-DAY CYCLE
     Route: 048
  2. PARACETAMOL [Concomitant]
     Active Substance: ACETAMINOPHEN
     Route: 048
  3. VINCRISTINE [Concomitant]
     Active Substance: VINCRISTINE
     Indication: B-CELL LYMPHOMA
     Dosage: [MAXIMUM 2 MG] ON DAY 1 OF EACH 21-DAY CYCLE
     Route: 042
  4. CYCLOPHOSPHAMIDE. [Concomitant]
     Active Substance: CYCLOPHOSPHAMIDE
     Indication: B-CELL LYMPHOMA
     Dosage: ON DAY 1 OF EACH 21-DAY CYCLE
     Route: 042
  5. RITUXIMAB. [Suspect]
     Active Substance: RITUXIMAB
     Indication: B-CELL LYMPHOMA
     Route: 042

REACTIONS (12)
  - Ileus [Unknown]
  - Upper respiratory tract infection [Unknown]
  - Leukopenia [Unknown]
  - Infusion related reaction [Unknown]
  - Encephalitis [Unknown]
  - Infection [Unknown]
  - Hypokalaemia [Unknown]
  - Urinary tract infection [Unknown]
  - Febrile neutropenia [Unknown]
  - Tuberculosis [Unknown]
  - Neuropathy peripheral [Unknown]
  - Neutropenia [Unknown]
